FAERS Safety Report 9372216 (Version 7)
Quarter: 2013Q4

REPORT INFORMATION
  Report Type: Report from Study
  Country: US (occurrence: US)
  Receive Date: 20130627
  Receipt Date: 20131108
  Transmission Date: 20140711
  Serious: Yes (Hospitalization, Other)
  Sender: FDA-Public Use
  Company Number: US-VERTEX PHARMACEUTICALS INC-2013-007487

PATIENT
  Age: 47 Year
  Sex: Female
  Weight: 62 kg

DRUGS (7)
  1. VX-950 (TELAPREVIR) [Suspect]
     Indication: HEPATITIS C
     Dosage: 750 MG, TID
     Route: 048
     Dates: start: 20130606, end: 20130829
  2. RIBAVIRIN [Suspect]
     Indication: HEPATITIS C
     Dosage: 400 MG, BID
     Route: 048
     Dates: start: 20130606
  3. PEGASYS [Suspect]
     Indication: HEPATITIS C
     Dosage: 180/0.5ML
     Route: 058
     Dates: start: 20130606
  4. BUSPAR [Concomitant]
     Indication: ANXIETY
     Dosage: 15 MG, PRN
  5. CELEXA [Concomitant]
     Dosage: 20 MG, QD
  6. LORTAB [Concomitant]
     Dosage: 7.5/500MG
  7. MULTIVITAMIN [Concomitant]
     Dosage: UNK, QD

REACTIONS (18)
  - Surgery [Recovered/Resolved]
  - Fall [Recovered/Resolved]
  - Dizziness [Recovered/Resolved]
  - Asthenia [Recovered/Resolved]
  - Faecal incontinence [Recovered/Resolved]
  - Urinary incontinence [Recovered/Resolved]
  - Influenza like illness [Recovered/Resolved]
  - Pharyngitis [Recovered/Resolved]
  - Pain [Recovered/Resolved]
  - Rhinorrhoea [Recovered/Resolved]
  - Irritability [Recovered/Resolved]
  - Intervertebral disc protrusion [Recovered/Resolved]
  - Oral infection [Recovered/Resolved]
  - Depression [Recovered/Resolved]
  - Mood swings [Recovered/Resolved]
  - White blood cell count decreased [Recovered/Resolved]
  - Fatigue [Recovered/Resolved]
  - Platelet count decreased [Recovered/Resolved]
